FAERS Safety Report 9261318 (Version 2)
Quarter: 2013Q3

REPORT INFORMATION
  Report Type: Spontaneous
  Country: CA (occurrence: CA)
  Receive Date: 20130429
  Receipt Date: 20130923
  Transmission Date: 20140515
  Serious: Yes (Other)
  Sender: FDA-Public Use
  Company Number: CA-PFIZER INC-2013130028

PATIENT
  Age: 84 Year
  Sex: Female

DRUGS (16)
  1. TECTA [Suspect]
     Indication: GASTROOESOPHAGEAL REFLUX DISEASE
     Dosage: 40 MG, 1X/DAY
     Route: 048
     Dates: start: 20120711, end: 20120715
  2. ACIDOPHILUS [Concomitant]
     Dosage: UNK
  3. ALPRAZOLAM [Concomitant]
     Dosage: 0.25 MG, UNK
  4. COZAAR [Concomitant]
     Dosage: UNK
  5. CRANBERRY [Concomitant]
     Dosage: UNK
  6. DULCOLAX [Concomitant]
     Dosage: UNK
  7. EZETROL [Concomitant]
     Dosage: UNK
  8. HUMALOG MIX 25 [Concomitant]
     Dosage: UNK
     Route: 058
  9. ISOSORBIDE [Concomitant]
     Dosage: UNK
  10. METOPROLOL [Concomitant]
     Dosage: UNK
  11. NIFEDIPINE [Concomitant]
     Dosage: UNK
  12. PLAVIX [Concomitant]
     Dosage: UNK
  13. B-KOMPLEX ^LECIVA^ [Concomitant]
     Dosage: UNK
  14. VITAMIN C [Concomitant]
     Dosage: UNK
  15. VITAMIN D [Concomitant]
     Dosage: UNK
  16. WELLBUTRIN [Concomitant]
     Dosage: UNK

REACTIONS (7)
  - Dyspnoea [Recovered/Resolved]
  - Chest pain [Recovered/Resolved]
  - Diarrhoea haemorrhagic [Recovered/Resolved]
  - Gastrointestinal pain [Recovered/Resolved]
  - Neck pain [Recovered/Resolved]
  - Asthenia [Recovered/Resolved]
  - Diarrhoea [Recovered/Resolved]
